FAERS Safety Report 16230538 (Version 1)
Quarter: 2019Q2

REPORT INFORMATION
  Report Type: Report from Study
  Country: US (occurrence: US)
  Receive Date: 20190423
  Receipt Date: 20190423
  Transmission Date: 20190711
  Serious: Yes (Hospitalization)
  Sender: FDA-Public Use
  Company Number: US-EXELIXIS-CABO-19019450

PATIENT
  Age: 53 Year
  Sex: Male

DRUGS (1)
  1. CABOMETYX [Suspect]
     Active Substance: CABOZANTINIB S-MALATE
     Indication: PRODUCT USED FOR UNKNOWN INDICATION
     Dosage: 60 MG, QD (PM W/O FOOD)
     Dates: start: 20190227

REACTIONS (16)
  - Thyroid hormones increased [Unknown]
  - Diarrhoea [Unknown]
  - Sinusitis bacterial [Not Recovered/Not Resolved]
  - Nausea [Recovered/Resolved]
  - Headache [Unknown]
  - Taste disorder [Not Recovered/Not Resolved]
  - Bruxism [Unknown]
  - Electrocardiogram abnormal [Unknown]
  - Aphonia [Recovering/Resolving]
  - Orthostatic hypotension [Unknown]
  - Dehydration [Unknown]
  - Fatigue [Not Recovered/Not Resolved]
  - Oxygen saturation decreased [Unknown]
  - Blood glucose decreased [Unknown]
  - Lethargy [Recovered/Resolved]
  - Hypotension [Recovered/Resolved]

NARRATIVE: CASE EVENT DATE: 201903
